FAERS Safety Report 7769676-5 (Version None)
Quarter: 2011Q3

REPORT INFORMATION
  Report Type: 
  Country: None (occurrence: None)
  Receive Date: 20110922
  Receipt Date: 20100827
  Transmission Date: 20111222
  Serious: No
  Sender: FDA-Public Use
  Company Number: US-ASTRAZENECA-2007UW27742

PATIENT
  Age: 62 Year
  Sex: Female
  Weight: 106.1 kg

DRUGS (22)
  1. CYMBALTA [Concomitant]
     Dates: start: 20061219
  2. GLUCOPHAGE [Concomitant]
     Dosage: 500-1000 MG
     Dates: start: 20070221
  3. SEROQUEL [Suspect]
     Route: 048
     Dates: start: 20030901, end: 20070801
  4. DIOVAN HCT [Concomitant]
     Dosage: 160/25 MG QD
     Dates: start: 20051205
  5. PREMARIN [Concomitant]
     Dosage: 0.625 MG QD
     Dates: start: 19930513
  6. ZANAFLEX [Concomitant]
     Dates: start: 20020619
  7. ZYPREXA [Concomitant]
     Indication: DEPRESSION
     Dates: start: 20030101
  8. SEROQUEL [Suspect]
     Indication: DISTRACTIBILITY
     Dosage: 200-800 MG
     Route: 048
     Dates: start: 20030318, end: 20070323
  9. SEROQUEL [Suspect]
     Dosage: 600-800 MG
     Route: 048
     Dates: start: 20051205
  10. LYRICA [Concomitant]
     Dates: start: 20060118
  11. SEROQUEL [Suspect]
     Indication: SLEEP DISORDER
     Dosage: 200-800 MG
     Route: 048
     Dates: start: 20030318, end: 20070323
  12. SEROQUEL [Suspect]
     Route: 048
     Dates: start: 20030901, end: 20070801
  13. SEROQUEL [Suspect]
     Dosage: 600-800 MG
     Route: 048
     Dates: start: 20051205
  14. SEROQUEL [Suspect]
     Dosage: 600-800 MG
     Route: 048
     Dates: start: 20051205
  15. ZYPREXA [Concomitant]
     Indication: ANXIETY
     Dates: start: 20030101
  16. SEROQUEL [Suspect]
     Indication: DEPRESSION
     Dosage: 200-800 MG
     Route: 048
     Dates: start: 20030318, end: 20070323
  17. SEROQUEL [Suspect]
     Indication: ANXIETY
     Dosage: 200-800 MG
     Route: 048
     Dates: start: 20030318, end: 20070323
  18. SEROQUEL [Suspect]
     Route: 048
     Dates: start: 20030901, end: 20070801
  19. SEROQUEL [Suspect]
     Route: 048
     Dates: start: 20030901, end: 20070801
  20. SEROQUEL [Suspect]
     Dosage: 600-800 MG
     Route: 048
     Dates: start: 20051205
  21. NORVASC [Concomitant]
     Dates: start: 20051205
  22. RISPERDAL [Concomitant]
     Dates: start: 20030101

REACTIONS (5)
  - DIABETES MELLITUS [None]
  - GLUCOSE TOLERANCE IMPAIRED [None]
  - DIABETIC COMPLICATION [None]
  - TYPE 2 DIABETES MELLITUS [None]
  - BACK INJURY [None]
